FAERS Safety Report 17877357 (Version 1)
Quarter: 2020Q2

REPORT INFORMATION
  Report Type: Spontaneous
  Country: HR (occurrence: HR)
  Receive Date: 20200609
  Receipt Date: 20200609
  Transmission Date: 20200714
  Serious: Yes (Other)
  Sender: FDA-Public Use
  Company Number: HR-PFIZER INC-2020221483

PATIENT
  Sex: Female

DRUGS (2)
  1. ZOLOFT [Suspect]
     Active Substance: SERTRALINE HYDROCHLORIDE
     Dosage: 1400 MG, 1X/DAY
     Route: 048
     Dates: start: 20200131, end: 20200131
  2. RISSET [Suspect]
     Active Substance: RISPERIDONE
     Dosage: 60 MG, 1X/DAY
     Route: 048
     Dates: start: 20200131, end: 20200131

REACTIONS (4)
  - Hypotension [Unknown]
  - Intentional overdose [Unknown]
  - Seizure [Unknown]
  - Suicide attempt [Unknown]

NARRATIVE: CASE EVENT DATE: 20200131
